FAERS Safety Report 6084535-4 (Version None)
Quarter: 2009Q1

REPORT INFORMATION
  Report Type: 
  Country: None (occurrence: None)
  Receive Date: 20090219
  Receipt Date: 20090210
  Transmission Date: 20090719
  Serious: Yes (Other)
  Sender: FDA-Public Use
  Company Number: PR-BAXTER-2009BH002305

PATIENT
  Age: 33 Year
  Sex: Male
  Weight: 85 kg

DRUGS (10)
  1. HEPARIN SODIUM INJECTION [Suspect]
     Indication: DRUG USE FOR UNKNOWN INDICATION
     Route: 042
     Dates: start: 20080312
  2. HEPARIN SODIUM INJECTION [Suspect]
     Route: 042
     Dates: start: 20070125
  3. HEPARIN SODIUM INJECTION [Suspect]
     Route: 042
     Dates: start: 20060502
  4. HEPARIN SODIUM INJECTION [Suspect]
     Route: 042
     Dates: start: 20030311
  5. HEPARIN SODIUM INJECTION [Suspect]
     Route: 042
     Dates: start: 20030403
  6. HEPARIN SODIUM INJECTION [Suspect]
     Route: 042
     Dates: start: 20020515
  7. HEPARIN SODIUM INJECTION [Suspect]
     Route: 042
     Dates: start: 20011029
  8. COUMADIN [Concomitant]
     Indication: DRUG USE FOR UNKNOWN INDICATION
     Route: 065
  9. ADVAIR DISKUS 100/50 [Concomitant]
     Indication: DRUG USE FOR UNKNOWN INDICATION
     Route: 065
  10. NEURONTIN [Concomitant]
     Indication: DRUG USE FOR UNKNOWN INDICATION
     Route: 065

REACTIONS (8)
  - ABDOMINAL PAIN [None]
  - ASTHMA [None]
  - DEEP VEIN THROMBOSIS [None]
  - DIZZINESS [None]
  - HEADACHE [None]
  - HYPOAESTHESIA [None]
  - IMMUNE SYSTEM DISORDER [None]
  - RASH [None]
